FAERS Safety Report 24263900 (Version 2)
Quarter: 2024Q3

REPORT INFORMATION
  Report Type: Spontaneous
  Country: US (occurrence: US)
  Receive Date: 20240829
  Receipt Date: 20240903
  Transmission Date: 20241016
  Serious: No
  Sender: AMGEN
  Company Number: US-AMGEN-USASP2024170534

PATIENT
  Sex: Female

DRUGS (2)
  1. MVASI [Suspect]
     Active Substance: BEVACIZUMAB-AWWB
     Indication: Ovarian cancer
     Dosage: DOSE ORDERED: 650MG, DOSE REQUESTED: 600MG (400 MG VIAL X1, 100MG VIAL X2)
     Route: 065
  2. MVASI [Suspect]
     Active Substance: BEVACIZUMAB-AWWB
     Dosage: DOSE ORDERED: 650MG, DOSE REQUESTED: 600MG (400 MG VIAL X1, 100MG VIAL X2)
     Route: 065

REACTIONS (1)
  - Unevaluable event [Unknown]
